FAERS Safety Report 7515634-5 (Version None)
Quarter: 2011Q2

REPORT INFORMATION
  Report Type: 
  Country: None (occurrence: None)
  Receive Date: 20110601
  Receipt Date: 20100729
  Transmission Date: 20111010
  Serious: No
  Sender: FDA-Public Use
  Company Number: US-PFIZER INC-2010025893

PATIENT
  Sex: Female
  Weight: 95 kg

DRUGS (10)
  1. HYDROCHLOROTHIAZIDE [Concomitant]
     Dosage: UNK
  2. AVANDIA [Concomitant]
     Indication: DIABETES MELLITUS
     Dosage: UNK
  3. OMEGA-3 TRIGLYCERIDES [Concomitant]
     Dosage: UNK
  4. NEPHRO-VITE [Concomitant]
     Indication: RENAL DISORDER
     Dosage: UNK
  5. ACETYLSALICYLIC ACID [Concomitant]
     Dosage: UNK
  6. CHANTIX [Suspect]
     Indication: SMOKING CESSATION THERAPY
     Dosage: 0.5 MG, 1X/DAY
     Route: 048
     Dates: start: 20100219, end: 20100601
  7. ZETIA [Concomitant]
     Indication: BLOOD CHOLESTEROL ABNORMAL
     Dosage: UNK
  8. RAMIPRIL [Concomitant]
     Dosage: UNK
  9. SIMVASTATIN [Concomitant]
     Indication: BLOOD CHOLESTEROL ABNORMAL
     Dosage: UNK
  10. LINEZOLID [Concomitant]
     Dosage: UNK

REACTIONS (4)
  - MALAISE [None]
  - NAUSEA [None]
  - VOMITING [None]
  - DYSGEUSIA [None]
